FAERS Safety Report 16242485 (Version 1)
Quarter: 2019Q2

REPORT INFORMATION
  Report Type: Spontaneous
  Country: US (occurrence: US)
  Receive Date: 20190426
  Receipt Date: 20190426
  Transmission Date: 20190711
  Serious: No
  Sender: FDA-Public Use
  Company Number: US-3R BIOPHARMA-2019TRISPO00485

PATIENT

DRUGS (3)
  1. CHILDREN ALLEGRA [Concomitant]
     Indication: SEASONAL ALLERGY
     Dosage: UNK
  2. QUILLICHEW ER [Suspect]
     Active Substance: METHYLPHENIDATE HYDROCHLORIDE
     Indication: ATTENTION DEFICIT/HYPERACTIVITY DISORDER
     Dosage: UNK
     Route: 065
  3. MELATONIN [Concomitant]
     Active Substance: MELATONIN
     Indication: INSOMNIA
     Dosage: 10 MG, UNK
     Route: 065

REACTIONS (1)
  - Initial insomnia [Unknown]
